FAERS Safety Report 4531913-8 (Version None)
Quarter: 2004Q4

REPORT INFORMATION
  Report Type: 
  Country: None (occurrence: None)
  Receive Date: 20041216
  Receipt Date: 20041203
  Transmission Date: 20050328
  Serious: Yes (Other)
  Sender: FDA-Public Use
  Company Number: 2004104106

PATIENT
  Age: 67 Year
  Sex: Male
  Weight: 77.1115 kg

DRUGS (13)
  1. CELEBREX [Suspect]
     Indication: RHEUMATOID ARTHRITIS
     Dosage: 200 MG (200 MG, 1 D), ORAL
     Route: 048
     Dates: start: 20010101
  2. ROFECOXIB [Suspect]
     Indication: RHEUMATOID ARTHRITIS
     Dosage: ORAL
     Route: 048
     Dates: start: 20020101, end: 20040101
  3. CAFFEINE (CAFFEINE) [Suspect]
     Indication: ILL-DEFINED DISORDER
  4. ALL OTHER NON-THERAPEUTIC PRODUCTS (ALL OTHER NON-THERAPEUTIC PRODUCTS [Suspect]
     Indication: ILL-DEFINED DISORDER
  5. ALL OTHER THERAPEUTIC PRODUCTS ( ALL OTHER THERAPEUTIC PRODUCTS) [Suspect]
     Indication: DYSPNOEA
     Dosage: NASAL
     Route: 045
  6. NAPROXEN [Suspect]
     Indication: ILL-DEFINED DISORDER
     Dosage: 1000 MG (500 M, 2 IN 1 D)
  7. OXYCODONE HYDROCHLORIDE AND ACETAMINOPHEN [Concomitant]
  8. LISINOPRIL [Concomitant]
  9. LORATADINE [Concomitant]
  10. APOREX (DEXTROPROPOXYPHENE HYDROCHLORIDE, PARACETAMOL) [Concomitant]
  11. TERAZOSIN (TERAZOSIN) [Concomitant]
  12. HYDROCHLOROTHIAZIDE [Concomitant]
  13. ASPIRIN [Concomitant]

REACTIONS (13)
  - ARTHRALGIA [None]
  - DRUG INEFFECTIVE [None]
  - DYSPNOEA [None]
  - ERUCTATION [None]
  - FEAR [None]
  - FEELING ABNORMAL [None]
  - HALLUCINATION, VISUAL [None]
  - HEPATIC CYST [None]
  - HYPERTENSION [None]
  - INSOMNIA [None]
  - MIDDLE INSOMNIA [None]
  - PAIN [None]
  - RHINORRHOEA [None]
